FAERS Safety Report 9323940 (Version 1)
Quarter: 2013Q2

REPORT INFORMATION
  Report Type: Spontaneous
  Country: DE (occurrence: DE)
  Receive Date: 20130603
  Receipt Date: 20130603
  Transmission Date: 20140414
  Serious: Yes (Congenital Anomaly, Other)
  Sender: FDA-Public Use
  Company Number: DE-PFIZER INC-2013163690

PATIENT
  Sex: Male
  Weight: 1.77 kg

DRUGS (2)
  1. SERTRALINE HCL [Suspect]
     Indication: DEPRESSION
     Dosage: 50 MG/DAY
     Route: 064
     Dates: start: 20090125, end: 200909
  2. SERTRALINE HCL [Suspect]
     Dosage: 25 MG/DAY
     Route: 064
     Dates: start: 200909

REACTIONS (5)
  - Foetal exposure during pregnancy [Unknown]
  - Small for dates baby [Recovered/Resolved]
  - Naevus flammeus [Unknown]
  - Haemangioma congenital [Unknown]
  - Feeding disorder neonatal [Recovered/Resolved]
